FAERS Safety Report 8022419-2 (Version None)
Quarter: 2012Q1

REPORT INFORMATION
  Report Type: 
  Country: None (occurrence: None)
  Receive Date: 20120104
  Receipt Date: 20120103
  Transmission Date: 20120608
  Serious: Yes (Hospitalization)
  Sender: FDA-Public Use
  Company Number: FR-ROCHE-1027143

PATIENT
  Sex: Male

DRUGS (18)
  1. AUGMENTIN '125' [Suspect]
     Indication: PRODUCT USED FOR UNKNOWN INDICATION
     Route: 048
     Dates: start: 20111117
  2. EZETIMIBE [Concomitant]
  3. ASPIRIN [Concomitant]
  4. CALCIPARINE [Suspect]
     Indication: PRODUCT USED FOR UNKNOWN INDICATION
     Route: 048
     Dates: start: 20111110, end: 20111118
  5. POLYETHYLENE GLYCOL [Suspect]
     Indication: PRODUCT USED FOR UNKNOWN INDICATION
     Route: 048
     Dates: start: 20111110, end: 20111118
  6. ATROVENT [Suspect]
     Indication: PRODUCT USED FOR UNKNOWN INDICATION
     Route: 048
     Dates: start: 20111110, end: 20111118
  7. CORVASAL [Concomitant]
  8. ROVAMYCINE [Suspect]
     Indication: PRODUCT USED FOR UNKNOWN INDICATION
     Route: 042
     Dates: start: 20111112, end: 20111117
  9. DILTIAZEM HCL [Concomitant]
  10. JANUVIA [Concomitant]
  11. ROCEPHIN [Suspect]
     Indication: PRODUCT USED FOR UNKNOWN INDICATION
     Route: 042
     Dates: start: 20111112, end: 20111125
  12. FLU-IMUNE [Concomitant]
     Route: 030
     Dates: start: 20111005
  13. PLAVIX [Concomitant]
  14. FLUTICASONE PROPIONATE [Concomitant]
  15. SIMVASTATIN [Concomitant]
  16. TERBUTALINE [Suspect]
     Indication: PRODUCT USED FOR UNKNOWN INDICATION
     Route: 048
     Dates: start: 20111110, end: 20111118
  17. ROVAMYCINE [Concomitant]
  18. IRBESARTAN AND HYDROCHLOROTHIAZIDE [Concomitant]

REACTIONS (1)
  - MENINGITIS ASEPTIC [None]
